FAERS Safety Report 25009427 (Version 1)
Quarter: 2025Q1

REPORT INFORMATION
  Report Type: Spontaneous
  Country: FR (occurrence: FR)
  Receive Date: 20250225
  Receipt Date: 20250225
  Transmission Date: 20250409
  Serious: Yes (Other)
  Sender: RANBAXY
  Company Number: FR-AFSSAPS-RS2024001283

PATIENT
  Age: 77 Year
  Sex: Male
  Weight: 71.3 kg

DRUGS (3)
  1. VENLAFAXINE [Suspect]
     Active Substance: VENLAFAXINE HYDROCHLORIDE
     Indication: Depression
     Route: 048
  2. ABILIFY [Suspect]
     Active Substance: ARIPIPRAZOLE
     Indication: Aggression
     Route: 048
     Dates: start: 20241120, end: 20241126
  3. LOXAPINE [Suspect]
     Active Substance: LOXAPINE
     Indication: Aggression
     Route: 048
     Dates: start: 20241120, end: 20241209

REACTIONS (1)
  - Erectile dysfunction [Recovering/Resolving]

NARRATIVE: CASE EVENT DATE: 20241201
